FAERS Safety Report 23836815 (Version 2)
Quarter: 2024Q3

REPORT INFORMATION
  Report Type: Spontaneous
  Country: FR (occurrence: FR)
  Receive Date: 20240509
  Receipt Date: 20240708
  Transmission Date: 20241016
  Serious: Yes (Hospitalization, Disabling, Other)
  Sender: TEVA
  Company Number: FR-AUROBINDO-AUR-APL-2024-013204

PATIENT
  Age: 38 Year
  Sex: Female

DRUGS (8)
  1. NOMEGESTROL [Suspect]
     Active Substance: NOMEGESTROL
     Indication: Contraception
     Route: 048
  2. NOMEGESTROL ACETATE [Suspect]
     Active Substance: NOMEGESTROL ACETATE
     Indication: Contraception
     Route: 048
  3. NOMEGESTROL ACETATE [Suspect]
     Active Substance: NOMEGESTROL ACETATE
     Indication: Contraception
     Route: 048
  4. DUPHASTON [Suspect]
     Active Substance: DYDROGESTERONE
     Indication: Product used for unknown indication
     Dosage: UNK
     Route: 065
  5. NOMEGESTROL [Suspect]
     Active Substance: NOMEGESTROL
     Indication: Contraception
     Route: 048
  6. FLUTICASONE FUROATE [Suspect]
     Active Substance: FLUTICASONE FUROATE
     Indication: Product used for unknown indication
     Dosage: 27.5 MICROGRAMS/SPRAY, NASAL SPRAY SUSPENSION
     Route: 065
  7. ETHINYL ESTRADIOL\NORGESTRIENONE [Suspect]
     Active Substance: ETHINYL ESTRADIOL\NORGESTRIENONE
     Indication: Product used for unknown indication
     Dosage: UNK
     Route: 065
  8. NOMEGESTROL ACETATE [Suspect]
     Active Substance: NOMEGESTROL ACETATE
     Indication: Product used for unknown indication
     Route: 048

REACTIONS (5)
  - Meningioma [Recovered/Resolved with Sequelae]
  - Meningioma surgery [Unknown]
  - Condition aggravated [Unknown]
  - Product use in unapproved indication [Unknown]
  - Contraindicated product administered [Unknown]

NARRATIVE: CASE EVENT DATE: 20110701
